FAERS Safety Report 8395711-X (Version None)
Quarter: 2012Q2

REPORT INFORMATION
  Report Type: 
  Country: None (occurrence: None)
  Receive Date: 20120530
  Receipt Date: 20120521
  Transmission Date: 20120825
  Serious: Yes (Other)
  Sender: FDA-Public Use
  Company Number: US-ASTRAZENECA-2012SE33021

PATIENT
  Age: 65 Year
  Sex: Female

DRUGS (28)
  1. BUPROPION HCL [Concomitant]
     Route: 048
  2. VITAMIN E [Concomitant]
     Dosage: 400 UNIT 2-3 TIMES A DAY
  3. XANAX [Concomitant]
     Dosage: 1 MG XANAX XR TWICE A DAY
     Route: 048
  4. CARDIZEM CD [Concomitant]
     Route: 048
  5. VITAMIN D [Concomitant]
     Route: 048
  6. CARDIZEM CD [Concomitant]
     Route: 048
  7. CLIMARA [Concomitant]
     Dosage: 0.0375MG/24HR ONE PATCH EVERY WEEK CYCLICALLY 3 WEEKS ON AND 1 WEEK OFF
     Route: 062
  8. PHENERGAN [Concomitant]
  9. PROAIR HFA [Concomitant]
     Dosage: 2 PUFFS EVERY 4-6 HOURS AS NEEDED
     Route: 055
  10. SYNTHROID [Concomitant]
     Route: 048
  11. ZOMIG [Suspect]
     Route: 048
  12. FLEXERIL [Concomitant]
     Route: 048
  13. FLONASE [Concomitant]
     Dosage: 1 SPRAY BY INTRANASAL TWICE A DAY IN EACH NOSTRIL
     Route: 045
  14. VENTOLIN HFA [Concomitant]
     Dosage: 90 UG 2 PUFFS EVERY 4-6 HOURS AS NEEDED
     Route: 055
  15. ADVAIR DISKUS 100/50 [Concomitant]
     Dosage: 250MCG-50MCG/DOSE ONE PUFF TWICE DAILY
     Route: 055
  16. ASPIRIN [Concomitant]
     Route: 048
  17. CITRACAL + D [Concomitant]
     Dosage: 315MG-200 UNIT 3 TIMES A DAY
  18. FIORICET [Concomitant]
     Dosage: 50 MG-325MG-40MG ONE TABLET EVERY EIGHT HOURS AS NEEDED
     Route: 048
  19. FISH OIL [Concomitant]
     Dosage: 300 MG- 1000MG CAP DELAYED RELEASE
  20. OXYCONTIN [Concomitant]
     Route: 048
  21. ZOMIG [Suspect]
     Dosage: IF HEADACHE RETURNS THE DOSE MAY BE REPEATED AFTER TWO HOURS, NOT TO EXCEED 10 MG WITHIN 24 HOURS
     Route: 048
  22. SINGULAIR [Concomitant]
     Route: 048
  23. TASIGNA [Concomitant]
     Route: 048
  24. ASTELIN [Concomitant]
     Dosage: 2 SPRAY BY INTRANASAL TWICE DAILY IN EACH NOSTRIL
     Route: 045
  25. DURAFLEX [Concomitant]
     Dosage: 375MG-150MG-125MG THREE TIMES A DAY
  26. MIRALAX [Concomitant]
     Route: 048
  27. REMERON [Concomitant]
  28. XANAX [Concomitant]
     Dosage: 0.5 MG EVERY 1-8 HOURS AS NEEDED
     Route: 048

REACTIONS (14)
  - BACK PAIN [None]
  - MIGRAINE [None]
  - OSTEOPOROSIS [None]
  - ASTHMA [None]
  - FIBROMYALGIA [None]
  - TENSION HEADACHE [None]
  - ARRHYTHMIA [None]
  - SPINAL CORD DISORDER [None]
  - THYROID DISORDER [None]
  - LEUKAEMIA [None]
  - DEAFNESS [None]
  - FATIGUE [None]
  - NEPHROLITHIASIS [None]
  - MYALGIA [None]
